FAERS Safety Report 25211070 (Version 1)
Quarter: 2025Q2

REPORT INFORMATION
  Report Type: Spontaneous
  Country: US (occurrence: US)
  Receive Date: 20250417
  Receipt Date: 20250417
  Transmission Date: 20250716
  Serious: No
  Sender: FRESENIUS MEDICAL CARE
  Company Number: US-FMCRTG-FMC-2503-000474

PATIENT
  Age: 47 Year
  Sex: Male
  Weight: 81 kg

DRUGS (1)
  1. DELFLEX [Suspect]
     Active Substance: CALCIUM CHLORIDE\DEXTROSE\MAGNESIUM CHLORIDE\SODIUM CHLORIDE\SODIUM LACTATE
     Indication: End stage renal disease
     Route: 033

REACTIONS (3)
  - Hypervolaemia [Recovered/Resolved]
  - Discomfort [Recovered/Resolved]
  - Product dose omission issue [Recovered/Resolved]
